FAERS Safety Report 5576105-9 (Version None)
Quarter: 2007Q4

REPORT INFORMATION
  Report Type: 
  Country: None (occurrence: None)
  Receive Date: 20071226
  Receipt Date: 20071211
  Transmission Date: 20080405
  Serious: Yes (Hospitalization)
  Sender: FDA-Public Use
  Company Number: GXKR2007NL10641

PATIENT
  Age: 47 Year
  Sex: Female

DRUGS (2)
  1. AMLODIPINE [Suspect]
     Dosage: 5 MG X 40 TABLETS, ORAL
     Route: 048
  2. LORAZEPAM [Suspect]
     Dosage: 1 MG X 20 TABLETS, ORAL
     Route: 048

REACTIONS (8)
  - BLOOD CREATININE ABNORMAL [None]
  - BLOOD PH INCREASED [None]
  - BRADYCARDIA [None]
  - DRUG TOXICITY [None]
  - HYPERGLYCAEMIA [None]
  - HYPOTENSION [None]
  - MULTIPLE DRUG OVERDOSE INTENTIONAL [None]
  - RESPIRATORY RATE INCREASED [None]
